FAERS Safety Report 25156790 (Version 4)
Quarter: 2025Q4

REPORT INFORMATION
  Report Type: Spontaneous
  Country: US (occurrence: US)
  Receive Date: 20250403
  Receipt Date: 20251007
  Transmission Date: 20260119
  Serious: Yes (Hospitalization, Other)
  Sender: UCB
  Company Number: US-UCBSA-2025018621

PATIENT
  Sex: Female

DRUGS (1)
  1. CIMZIA [Suspect]
     Active Substance: CERTOLIZUMAB PEGOL
     Indication: Ankylosing spondylitis
     Dosage: 200 MILLIGRAM, EV 2 WEEKS(QOW)
     Route: 058
     Dates: start: 202404, end: 2025

REACTIONS (5)
  - Myocardial infarction [Unknown]
  - Coronary arterial stent insertion [Unknown]
  - Coronary artery occlusion [Unknown]
  - Ankylosing spondylitis [Unknown]
  - Drug ineffective [Unknown]
